FAERS Safety Report 8942068 (Version 2)
Quarter: 2013Q1

REPORT INFORMATION
  Report Type: Spontaneous
  Country: IT (occurrence: IT)
  Receive Date: 20121203
  Receipt Date: 20130213
  Transmission Date: 20140127
  Serious: Yes (Hospitalization, Other)
  Sender: FDA-Public Use
  Company Number: IT-PFIZER INC-2012271419

PATIENT
  Age: 72 Year
  Sex: Female

DRUGS (6)
  1. XANAX [Suspect]
     Indication: DEPRESSION
     Dosage: 1.5 MG, TOTAL DOSE
     Route: 048
     Dates: start: 20120813
  2. XERISTAR [Suspect]
     Indication: DEPRESSION
     Dosage: 60 MG, TOTAL DOSE
     Route: 048
     Dates: start: 20120813
  3. BISOPROLOL FUMARATE [Concomitant]
  4. LASIX [Concomitant]
     Route: 048
  5. LOSAPREX [Concomitant]
     Route: 048
  6. COUMADIN [Concomitant]
     Indication: PULMONARY EMBOLISM
     Dosage: 1 DF, UNK
     Route: 048
     Dates: start: 20110814

REACTIONS (6)
  - Asthenia [Recovering/Resolving]
  - Vomiting [Recovering/Resolving]
  - Paraesthesia [Recovering/Resolving]
  - Sinus rhythm [Unknown]
  - Electrocardiogram QT prolonged [Unknown]
  - Blood lactate dehydrogenase [Unknown]
